FAERS Safety Report 8474610-9 (Version None)
Quarter: 2012Q2

REPORT INFORMATION
  Report Type: 
  Country: None (occurrence: None)
  Receive Date: 20120628
  Receipt Date: 20120619
  Transmission Date: 20120825
  Serious: Yes (Other)
  Sender: FDA-Public Use
  Company Number: US-JNJFOC-20120612883

PATIENT

DRUGS (3)
  1. BORTEZOMIB [Suspect]
     Indication: MULTIPLE MYELOMA
     Dosage: ON DAYS 1, 4, 8 AND 11
     Route: 065
  2. VORINOSTAT [Suspect]
     Indication: MULTIPLE MYELOMA
     Dosage: ESCALATING DOSE ON DAYS 4-11 OR 1-14 OF A 3-WEEK CYCLE
     Route: 065
  3. DOXORUBICIN HCL [Suspect]
     Indication: MULTIPLE MYELOMA
     Dosage: ON DAY 4
     Route: 065

REACTIONS (2)
  - SYSTOLIC DYSFUNCTION [None]
  - ATRIAL FLUTTER [None]
